FAERS Safety Report 15626589 (Version 2)
Quarter: 2019Q1

REPORT INFORMATION
  Report Type: Report from Study
  Country: US (occurrence: US)
  Receive Date: 20181116
  Receipt Date: 20190212
  Transmission Date: 20190417
  Serious: Yes (Other)
  Sender: FDA-Public Use
  Company Number: US-BAYER-2018-212355

PATIENT
  Sex: Female

DRUGS (23)
  1. VESICARE [Concomitant]
     Active Substance: SOLIFENACIN SUCCINATE
     Dosage: 5 MG
     Dates: start: 20161103
  2. BETASERON [Suspect]
     Active Substance: INTERFERON BETA-1B
     Indication: MULTIPLE SCLEROSIS
     Dosage: 1 ML, QOD
     Route: 058
     Dates: start: 20181207
  3. AMOXICILLIN AND CLAVUNATE POTASSIUM [Concomitant]
     Dosage: 875 MG
     Dates: start: 20181004
  4. DEXILANT [Concomitant]
     Active Substance: DEXLANSOPRAZOLE
     Dosage: 60 MG
     Dates: start: 20181210
  5. FLUTICASONE. [Concomitant]
     Active Substance: FLUTICASONE
     Dosage: 50 MG
     Route: 045
     Dates: start: 20181119
  6. SULFAMETHOXAZOLE AND TRIMETHOPRIM [Concomitant]
     Active Substance: SULFAMETHOXAZOLE\TRIMETHOPRIM
     Dosage: 160 UNK
     Dates: start: 20170714
  7. TRETINOIN. [Concomitant]
     Active Substance: TRETINOIN
     Dosage: UNK
     Route: 061
     Dates: start: 20181027
  8. CELECOXIB. [Concomitant]
     Active Substance: CELECOXIB
     Dosage: 200 MG
     Dates: start: 20181016
  9. DIAZEPAM. [Concomitant]
     Active Substance: DIAZEPAM
     Dosage: 1 DF, HS
     Route: 048
     Dates: start: 20181105
  10. LEVOTHYROXINE. [Concomitant]
     Active Substance: LEVOTHYROXINE
     Dosage: 75 ?G
     Dates: start: 20181114
  11. VESICARE [Concomitant]
     Active Substance: SOLIFENACIN SUCCINATE
     Dosage: 10 MG
     Dates: start: 20180625
  12. SULFAMETHOXAZOLE AND TRIMETHOPRIM [Concomitant]
     Active Substance: SULFAMETHOXAZOLE\TRIMETHOPRIM
     Dosage: 800 MG
     Dates: start: 20170714
  13. ALENDRONATE [Concomitant]
     Active Substance: ALENDRONATE SODIUM
     Dosage: 35 MG
     Dates: start: 20181210
  14. OXYCODONE AND ACETAMINOPHEN [Concomitant]
     Active Substance: ACETAMINOPHEN\OXYCODONE HYDROCHLORIDE
     Dosage: 7.5 MG
     Dates: start: 20180319
  15. OXYCODONE AND ACETAMINOPHEN [Concomitant]
     Active Substance: ACETAMINOPHEN\OXYCODONE HYDROCHLORIDE
     Dosage: 325 UNK
     Dates: start: 20180319
  16. BETASERON [Suspect]
     Active Substance: INTERFERON BETA-1B
     Indication: MULTIPLE SCLEROSIS
     Dosage: 0.25 MG, QOD
     Route: 058
     Dates: start: 201603
  17. DEXAMETHASONE. [Concomitant]
     Active Substance: DEXAMETHASONE
     Dosage: 1 MG
     Dates: start: 20181030
  18. AMOXICILLIN. [Concomitant]
     Active Substance: AMOXICILLIN
     Dosage: 500 MG
     Dates: start: 20180419
  19. BACLOFEN. [Concomitant]
     Active Substance: BACLOFEN
     Dosage: 1.5 DF, BID
     Route: 048
     Dates: start: 20181112
  20. CELECOXIB. [Concomitant]
     Active Substance: CELECOXIB
     Dosage: 50 UNK
     Dates: start: 20170102
  21. CEPHALEXIN [CEFALEXIN] [Concomitant]
     Active Substance: CEPHALEXIN
     Dosage: 500 MG
     Dates: start: 20181214
  22. CLINDAMYCIN HCL [Concomitant]
     Active Substance: CLINDAMYCIN HYDROCHLORIDE
     Dosage: 150 MG
     Dates: start: 20180601
  23. KERYDIN [Concomitant]
     Active Substance: TAVABOROLE
     Dosage: UNK
     Route: 061
     Dates: start: 20170505

REACTIONS (4)
  - Central nervous system lesion [None]
  - Injection site reaction [None]
  - Hemiparaesthesia [None]
  - Cellulitis [None]

NARRATIVE: CASE EVENT DATE: 2017
